APPROVED DRUG PRODUCT: DECA-DURABOLIN
Active Ingredient: NANDROLONE DECANOATE
Strength: 200MG/ML **Federal Register determination that product was not discontinued or withdrawn for safety or effectiveness reasons**
Dosage Form/Route: INJECTABLE;INJECTION
Application: N013132 | Product #003
Applicant: WOODWARD SPECIALTY LLC
Approved: Jun 12, 1986 | RLD: Yes | RS: No | Type: DISCN